FAERS Safety Report 6098896-3 (Version None)
Quarter: 2009Q1

REPORT INFORMATION
  Report Type: 
  Country: None (occurrence: None)
  Receive Date: 20090302
  Receipt Date: 20090226
  Transmission Date: 20090719
  Serious: Yes (Death, Life-Threatening)
  Sender: FDA-Public Use
  Company Number: CH-ASTRAZENECA-2009PK00677

PATIENT
  Age: 35 Year
  Sex: Male

DRUGS (8)
  1. SEROQUEL [Suspect]
     Indication: SCHIZOAFFECTIVE DISORDER
     Route: 048
     Dates: start: 20080520, end: 20080626
  2. HALDOL [Suspect]
     Route: 048
     Dates: start: 20080527, end: 20080602
  3. HALDOL [Suspect]
     Route: 048
     Dates: start: 20080603, end: 20080603
  4. HALDOL [Suspect]
     Route: 048
     Dates: start: 20080604, end: 20080612
  5. AKINETON [Suspect]
     Route: 048
     Dates: start: 20080610, end: 20080626
  6. TEMESTA [Suspect]
     Route: 048
     Dates: start: 20080527, end: 20080615
  7. TEMESTA [Suspect]
     Route: 048
     Dates: start: 20080616, end: 20080626
  8. LAMICTAL [Concomitant]
     Route: 048
     Dates: start: 20080520, end: 20080626

REACTIONS (1)
  - COMPLETED SUICIDE [None]
